FAERS Safety Report 12758785 (Version 3)
Quarter: 2016Q4

REPORT INFORMATION
  Report Type: Report from Study
  Country: US (occurrence: US)
  Receive Date: 20160919
  Receipt Date: 20161017
  Transmission Date: 20170207
  Serious: Yes (Other)
  Sender: FDA-Public Use
  Company Number: US-AMGEN-USASL2016124308

PATIENT
  Age: 63 Year
  Sex: Female
  Weight: 73.16 kg

DRUGS (1)
  1. REPATHA [Suspect]
     Active Substance: EVOLOCUMAB
     Indication: BLOOD CHOLESTEROL ABNORMAL
     Dosage: 140 MG/ML, Q2WK
     Route: 058
     Dates: start: 20160902

REACTIONS (7)
  - Tongue disorder [Recovering/Resolving]
  - Adverse drug reaction [Recovered/Resolved]
  - Glossodynia [Recovering/Resolving]
  - Tongue exfoliation [Recovering/Resolving]
  - Swollen tongue [Recovered/Resolved]
  - Speech disorder [Unknown]
  - Tongue discolouration [Recovering/Resolving]

NARRATIVE: CASE EVENT DATE: 201609
